FAERS Safety Report 10018785 (Version 1)
Quarter: 2014Q1

REPORT INFORMATION
  Report Type: Spontaneous
  Country: US (occurrence: None)
  Receive Date: 20140314
  Receipt Date: 20140314
  Transmission Date: 20141002
  Serious: Yes (Other)
  Sender: FDA-Public Use
  Company Number: None

PATIENT
  Age: 44 Year
  Sex: Female
  Weight: 70.31 kg

DRUGS (21)
  1. MINASTRIN [Suspect]
     Indication: CONTRACEPTION
     Dosage: 1 PILL
     Route: 048
     Dates: start: 20131116, end: 20140118
  2. MINASTRIN [Suspect]
     Indication: MIGRAINE PROPHYLAXIS
     Dosage: 1 PILL
     Route: 048
     Dates: start: 20131116, end: 20140118
  3. VYVANSE [Concomitant]
  4. PRISTIQ [Concomitant]
  5. SINGULAIR [Concomitant]
  6. LOMEDIA 24 FE [Concomitant]
  7. LUNESTA [Concomitant]
  8. CLONAZEPAM [Concomitant]
  9. RELPAX [Concomitant]
  10. VICODIN [Concomitant]
  11. TRANSDERM SCOPALAMINE [Concomitant]
  12. CLOBETASOL PROPIONATE [Concomitant]
  13. CORDRAN TAPE [Concomitant]
  14. VITAMIN B COMPLEX [Concomitant]
  15. DAILY MULTIVITAMIN [Concomitant]
  16. OMEGA 3 [Concomitant]
  17. DHA GUMMY SUPPLEMENT [Concomitant]
  18. VITAMIN D [Concomitant]
  19. DAILY ONE BABY ASPIRIN [Concomitant]
  20. NAPROXEN SODIUM [Concomitant]
  21. ZYRTEC [Concomitant]

REACTIONS (4)
  - Irritability [None]
  - Crying [None]
  - Mood swings [None]
  - Product substitution issue [None]
